FAERS Safety Report 7817326-1 (Version None)
Quarter: 2011Q4

REPORT INFORMATION
  Report Type: 
  Country: None (occurrence: None)
  Receive Date: 20111017
  Receipt Date: 20111012
  Transmission Date: 20120403
  Serious: Yes (Hospitalization)
  Sender: FDA-Public Use
  Company Number: IN-SANOFI-AVENTIS-2011SA065597

PATIENT
  Age: 55 Year
  Sex: Male
  Weight: 55 kg

DRUGS (3)
  1. ALL OTHER THERAPEUTIC PRODUCTS [Concomitant]
  2. ENOXAPARIN SODIUM [Suspect]
     Route: 058
     Dates: end: 20111005
  3. ANTIBIOTICS [Concomitant]

REACTIONS (3)
  - BRONCHOSPASM [None]
  - PRODUCT QUALITY ISSUE [None]
  - HYPOTENSION [None]
